FAERS Safety Report 9314073 (Version 1)
Quarter: 2013Q2

REPORT INFORMATION
  Report Type: Spontaneous
  Country: US (occurrence: None)
  Receive Date: 20130524
  Receipt Date: 20130524
  Transmission Date: 20140414
  Serious: Yes (Hospitalization)
  Sender: FDA-Public Use
  Company Number: None

PATIENT
  Age: 60 Year
  Sex: Female
  Weight: 53.7 kg

DRUGS (13)
  1. TASIGNA [Suspect]
     Indication: CHRONIC MYELOID LEUKAEMIA
     Route: 048
     Dates: start: 20130401, end: 20130518
  2. ADVAIR [Concomitant]
  3. ALLOPURINOL [Concomitant]
  4. AMBIEN [Concomitant]
  5. HCTZ [Concomitant]
  6. LOPRESSOR [Concomitant]
  7. NICOTINE [Concomitant]
  8. NITROSTAT SL [Concomitant]
  9. NORVASC [Concomitant]
  10. PREDNISONE [Concomitant]
  11. PROAIR HFA [Concomitant]
  12. OXYCODONE [Concomitant]
  13. ZOFRAN [Concomitant]

REACTIONS (8)
  - Lobar pneumonia [None]
  - Chronic obstructive pulmonary disease [None]
  - Acute respiratory failure [None]
  - Pneumonia [None]
  - Acute lung injury [None]
  - Pulmonary oedema [None]
  - Pleural effusion [None]
  - Acute respiratory distress syndrome [None]
